FAERS Safety Report 6179493-8 (Version None)
Quarter: 2009Q2

REPORT INFORMATION
  Report Type: 
  Country: None (occurrence: None)
  Receive Date: 20090505
  Receipt Date: 20090428
  Transmission Date: 20091009
  Serious: Yes (Death, Life-Threatening, Hospitalization)
  Sender: FDA-Public Use
  Company Number: GB-ROCHE-618978

PATIENT
  Sex: Male
  Weight: 94.6 kg

DRUGS (16)
  1. CAPECITABINE [Suspect]
     Indication: GASTRIC CANCER
     Dosage: LAST DOSE PRIOR TO SAE:13 JANUARY 2009, FREQUENCY: D1-D14.
     Route: 048
     Dates: start: 20080912, end: 20090203
  2. BLINDED BEVACIZUMAB [Suspect]
     Indication: GASTRIC CANCER
     Dosage: DOSE BLINDED. LAST DOSE PRIOR TO SAE: 26 FEBRUARY 2009, FREQUENCY D1Q3W. DOSE FORM: INFUSION.
     Route: 042
     Dates: start: 20080912, end: 20090309
  3. CISPLATIN [Suspect]
     Indication: GASTRIC CANCER
     Dosage: LAST DOSE PRIOR TO SAE: 13 JANUARY 2009, FREQUENCY: D1Q3W, DOSE FORM: INFUSION.
     Route: 042
     Dates: start: 20080912, end: 20090203
  4. CLOPIDOGREL [Suspect]
     Indication: DRUG USE FOR UNKNOWN INDICATION
     Route: 065
     Dates: start: 20030101, end: 20090309
  5. CLEXANE [Suspect]
     Indication: DRUG USE FOR UNKNOWN INDICATION
     Route: 065
     Dates: start: 20081222, end: 20090309
  6. OMEPRAZOLE [Concomitant]
     Dates: start: 20090201, end: 20090309
  7. DIFFLAM [Concomitant]
     Dates: start: 20090113
  8. TRAMADOL HCL [Concomitant]
     Dates: start: 20080902, end: 20090309
  9. ONDANSETRON [Concomitant]
     Dosage: PRN
     Dates: start: 20080901
  10. AMOXICILLIN [Concomitant]
     Dates: start: 20090212
  11. CLARITHROMYCIN [Concomitant]
     Dates: start: 20090214
  12. ACETAMINOPHEN W/ CODEINE [Concomitant]
     Dosage: TOTAL DAILY DOSE: 60/1000MG
     Dates: start: 20081023, end: 20090101
  13. BETAHISTINE [Concomitant]
     Dates: end: 20090127
  14. INDAPAMIDE [Concomitant]
     Dates: start: 20081101, end: 20090309
  15. FOLIC ACID [Concomitant]
     Dates: start: 20010101, end: 20090309
  16. DOMPERIDONE [Concomitant]
     Dosage: TDD: 20 MG PRN
     Dates: start: 20081101, end: 20090308

REACTIONS (3)
  - OESOPHAGEAL HAEMORRHAGE [None]
  - PULMONARY EMBOLISM [None]
  - PULMONARY HAEMORRHAGE [None]
